FAERS Safety Report 19047228 (Version 1)
Quarter: 2021Q1

REPORT INFORMATION
  Report Type: Spontaneous
  Country: SE (occurrence: SE)
  Receive Date: 20210323
  Receipt Date: 20210323
  Transmission Date: 20210420
  Serious: Yes (Disabling)
  Sender: FDA-Public Use
  Company Number: SE-SA-2021SA095438

PATIENT
  Age: 30 Year
  Sex: Male
  Weight: 70 kg

DRUGS (1)
  1. GAVISCON [Suspect]
     Active Substance: ALUMINUM HYDROXIDE\MAGNESIUM CARBONATE
     Indication: DYSPEPSIA
     Dosage: DAILY INTAKE, FEW DAYS FIVE TABLETS, MOSTLY AT NIGHT
     Dates: start: 2016, end: 2020

REACTIONS (1)
  - Tooth erosion [Not Recovered/Not Resolved]

NARRATIVE: CASE EVENT DATE: 2017
